FAERS Safety Report 7741285-3 (Version None)
Quarter: 2011Q3

REPORT INFORMATION
  Report Type: 
  Country: None (occurrence: None)
  Receive Date: 20110909
  Receipt Date: 20110830
  Transmission Date: 20111222
  Serious: Yes (Hospitalization)
  Sender: FDA-Public Use
  Company Number: US-ELI_LILLY_AND_COMPANY-US201011006615

PATIENT
  Sex: Female

DRUGS (5)
  1. HUMULIN R [Suspect]
     Dosage: UNK, UNK
     Dates: start: 20090101
  2. LANTUS [Concomitant]
  3. HUMULIN N [Suspect]
     Indication: DIABETES MELLITUS
     Dosage: UNK UNK, UNKNOWN
     Dates: start: 20101101
  4. NOVOLOG [Concomitant]
  5. NOVOLIN 70/30 [Concomitant]

REACTIONS (11)
  - SWELLING FACE [None]
  - SWELLING [None]
  - BLADDER OPERATION [None]
  - RENAL SURGERY [None]
  - HYPOACUSIS [None]
  - HOSPITALISATION [None]
  - PAIN IN EXTREMITY [None]
  - OEDEMA PERIPHERAL [None]
  - DRUG HYPERSENSITIVITY [None]
  - HYSTERECTOMY [None]
  - SURGERY [None]
